FAERS Safety Report 9452435 (Version 1)
Quarter: 2013Q3

REPORT INFORMATION
  Report Type: Spontaneous
  Country: FR (occurrence: FR)
  Receive Date: 20130812
  Receipt Date: 20130812
  Transmission Date: 20140515
  Serious: Yes (Hospitalization)
  Sender: FDA-Public Use
  Company Number: FR-JNJFOC-20130802434

PATIENT
  Age: 80 Year
  Sex: Female

DRUGS (3)
  1. XARELTO [Suspect]
     Indication: PRODUCT USED FOR UNKNOWN INDICATION
     Dosage: CUMULATIVE DOSE TO FIRST REACTION 110 MG.
     Route: 048
     Dates: start: 20130211, end: 20130221
  2. EUPANTOL [Concomitant]
     Route: 048
  3. LAMALINE [Concomitant]
     Route: 048

REACTIONS (2)
  - Venous thrombosis [Recovered/Resolved]
  - Drug ineffective [Unknown]
